FAERS Safety Report 8295710-2 (Version None)
Quarter: 2012Q2

REPORT INFORMATION
  Report Type: 
  Country: None (occurrence: None)
  Receive Date: 20120416
  Receipt Date: 20120416
  Transmission Date: 20120825
  Serious: Yes (Hospitalization)
  Sender: FDA-Public Use
  Company Number: None

PATIENT
  Age: 61 Year
  Sex: Male
  Weight: 100.6985 kg

DRUGS (1)
  1. BYETTA [Suspect]
     Indication: TYPE 2 DIABETES MELLITUS
     Dosage: 10 MCG BID SC (057)
     Route: 058
     Dates: start: 20090101, end: 20120410

REACTIONS (3)
  - BLOOD TRIGLYCERIDES INCREASED [None]
  - PANCREATITIS ACUTE [None]
  - CHOLELITHIASIS [None]
